FAERS Safety Report 10645233 (Version 2)
Quarter: 2014Q4

REPORT INFORMATION
  Report Type: Report from Study
  Country: CA (occurrence: CA)
  Receive Date: 20141211
  Receipt Date: 20141230
  Transmission Date: 20150529
  Serious: Yes (Other)
  Sender: FDA-Public Use
  Company Number: CA-LEO PHARMA-231076

PATIENT

DRUGS (1)
  1. NON-LEO PRODUCT [Suspect]
     Active Substance: UNSPECIFIED INGREDIENT
     Indication: ACTINIC KERATOSIS
     Dates: start: 20141023, end: 20141104

REACTIONS (1)
  - Neuroendocrine carcinoma of the skin [Unknown]
